FAERS Safety Report 7670859-3 (Version None)
Quarter: 2011Q3

REPORT INFORMATION
  Report Type: 
  Country: None (occurrence: None)
  Receive Date: 20110803
  Receipt Date: 20110719
  Transmission Date: 20111222
  Serious: Yes (Death, Hospitalization)
  Sender: FDA-Public Use
  Company Number: 2011MA009040

PATIENT
  Age: 55 Year
  Sex: Male

DRUGS (2)
  1. VALACYCLOVIR [Suspect]
     Indication: PRODUCT USED FOR UNKNOWN INDICATION
  2. ACYCLOVIR [Suspect]
     Indication: HERPES ZOSTER
     Dosage: IV
     Route: 042

REACTIONS (4)
  - GENERAL PHYSICAL HEALTH DETERIORATION [None]
  - UNEVALUABLE EVENT [None]
  - DRUG RESISTANCE [None]
  - GENE MUTATION [None]
